FAERS Safety Report 8825770 (Version 2)
Quarter: 2012Q4

REPORT INFORMATION
  Report Type: 
  Country: GB (occurrence: GB)
  Receive Date: 20121004
  Receipt Date: 20121022
  Transmission Date: 20130627
  Serious: Yes (Other)
  Sender: FDA-Public Use
  Company Number: GB-VERTEX PHARMACEUTICAL INC.-2012-022361

PATIENT
  Age: 66 Year
  Sex: Female

DRUGS (4)
  1. INCIVO [Suspect]
     Indication: HEPATITIS C
     Dosage: 750 mg, tid
     Route: 048
  2. INCIVO [Suspect]
     Dosage: Dosage Form: Tablet
     Route: 048
  3. VIRAFERON PEG [Concomitant]
     Indication: HEPATITIS C
     Dosage: 105 ?g, qw
     Route: 065
     Dates: start: 20120417
  4. REBETOL [Concomitant]
     Indication: HEPATITIS C
     Dosage: Dosage Form: Unspecified
     Route: 065
     Dates: start: 20120417

REACTIONS (1)
  - Blood creatinine increased [Recovered/Resolved]
